FAERS Safety Report 11373869 (Version 1)
Quarter: 2015Q3

REPORT INFORMATION
  Report Type: Spontaneous
  Country: US (occurrence: None)
  Receive Date: 20150804
  Receipt Date: 20150804
  Transmission Date: 20151125
  Serious: No
  Sender: FDA-Public Use
  Company Number: US-SEPTODONT-201402443

PATIENT
  Age: 20 Year
  Sex: Female
  Weight: 75 kg

DRUGS (2)
  1. SEPTOCAINE AND EPINEPHRINE [Suspect]
     Active Substance: ARTICAINE HYDROCHLORIDE\EPINEPHRINE BITARTRATE
     Indication: LOCAL ANAESTHESIA
     Dosage: 2 DF TOTAL DENTAL
     Route: 004
     Dates: start: 2012, end: 2012
  2. BENZOCAINE 20% (BENZOCAINE) [Concomitant]

REACTIONS (5)
  - Inadequate analgesia [None]
  - Facial spasm [None]
  - Muscle twitching [None]
  - Hypoaesthesia [None]
  - Excessive eye blinking [None]

NARRATIVE: CASE EVENT DATE: 20120905
